FAERS Safety Report 12645088 (Version 2)
Quarter: 2016Q3

REPORT INFORMATION
  Report Type: Report from Study
  Country: FR (occurrence: FR)
  Receive Date: 20160811
  Receipt Date: 20160929
  Transmission Date: 20161109
  Serious: Yes (Hospitalization, Other)
  Sender: FDA-Public Use
  Company Number: FR-INCYTE CORPORATION-2015IN004076

PATIENT
  Age: 68 Year
  Sex: Female

DRUGS (11)
  1. ARANESP [Suspect]
     Active Substance: DARBEPOETIN ALFA
     Indication: MYELOFIBROSIS
     Dosage: 500 UG, QMO
     Route: 058
     Dates: start: 20141212
  2. PROPANOLOL [Concomitant]
     Active Substance: PROPRANOLOL HYDROCHLORIDE
     Indication: EXTRASYSTOLES
     Dosage: 200 MG, QD
     Route: 065
     Dates: start: 2011
  3. DIFFU K [Concomitant]
     Active Substance: POTASSIUM CHLORIDE
     Indication: HYPOKALAEMIA
     Dosage: 600 MG, SIX TIMES DAILY
     Route: 065
     Dates: start: 20160309
  4. PREVISCAN [Concomitant]
     Active Substance: FLUINDIONE
     Dosage: 20 MG, QD (0.75 DF)
     Route: 065
     Dates: start: 20160314
  5. AMLOR [Concomitant]
     Active Substance: AMLODIPINE BESYLATE
  6. JAKAFI [Suspect]
     Active Substance: RUXOLITINIB
     Indication: MYELOFIBROSIS
     Dosage: 10 MG, QD
     Route: 048
     Dates: start: 20140821
  7. JAKAFI [Suspect]
     Active Substance: RUXOLITINIB
     Dosage: 5 MG, BID
     Route: 048
     Dates: start: 20141016
  8. PREVISCAN [Concomitant]
     Active Substance: FLUINDIONE
     Indication: PRODUCT USED FOR UNKNOWN INDICATION
     Dosage: 20 MG, QD (0.5 DF)
     Route: 065
     Dates: start: 20080206
  9. FLECAINE [Concomitant]
     Active Substance: FLECAINIDE
     Indication: EXTRASYSTOLES
     Dosage: 50 MG, QD
     Route: 065
     Dates: start: 20130718
  10. LOXEN//NICARDIPINE HYDROCHLORIDE [Concomitant]
     Active Substance: NICARDIPINE HYDROCHLORIDE
     Indication: HYPERTENSION
     Dosage: 20 MG, QD
     Route: 065
     Dates: start: 20160307, end: 20160307
  11. AMLOR [Concomitant]
     Active Substance: AMLODIPINE BESYLATE
     Indication: HYPERTENSION
     Dosage: 5 MG, QD
     Route: 065
     Dates: start: 20160308

REACTIONS (17)
  - Nephroangiosclerosis [Unknown]
  - Hyperthyroidism [Not Recovered/Not Resolved]
  - Cardiac failure [Recovered/Resolved]
  - Restrictive pulmonary disease [Not Recovered/Not Resolved]
  - Cardiac failure [Recovering/Resolving]
  - Acute kidney injury [Recovered/Resolved]
  - Pulmonary arterial hypertension [Unknown]
  - Lung disorder [Recovered/Resolved]
  - Glomerulonephropathy [Recovered/Resolved with Sequelae]
  - Aortic valve stenosis [Not Recovered/Not Resolved]
  - Chronic kidney disease [Not Recovered/Not Resolved]
  - Hypertrophic cardiomyopathy [Unknown]
  - Cardiac valve disease [Unknown]
  - Cardiac failure [Recovered/Resolved]
  - Diabetic nephropathy [Unknown]
  - Pneumonitis [Recovered/Resolved]
  - Aortic stenosis [Not Recovered/Not Resolved]

NARRATIVE: CASE EVENT DATE: 20150219
